FAERS Safety Report 16559210 (Version 1)
Quarter: 2019Q3

REPORT INFORMATION
  Report Type: Spontaneous
  Country: FR (occurrence: FR)
  Receive Date: 20190711
  Receipt Date: 20190711
  Transmission Date: 20191004
  Serious: Yes (Hospitalization)
  Sender: FDA-Public Use
  Company Number: FR-ROCHE-2353656

PATIENT
  Age: 59 Year
  Sex: Female
  Weight: 74 kg

DRUGS (4)
  1. EUPANTOL [Suspect]
     Active Substance: PANTOPRAZOLE SODIUM
     Indication: PROPHYLAXIS AGAINST GASTROINTESTINAL ULCER
     Dosage: MOST RECENT DOSE ON 11/MAY/2019
     Route: 048
     Dates: start: 2016
  2. LYRICA [Suspect]
     Active Substance: PREGABALIN
     Indication: GRANULOMATOSIS WITH POLYANGIITIS
     Dosage: MOST RECENT DOSE ON 11/MAY/2019
     Route: 048
     Dates: start: 201807
  3. MABTHERA [Suspect]
     Active Substance: RITUXIMAB
     Indication: GRANULOMATOSIS WITH POLYANGIITIS
     Dosage: MOST RECENT DOSE ON 17/JAN/2019
     Route: 041
     Dates: start: 201807
  4. BACTRIM [Suspect]
     Active Substance: SULFAMETHOXAZOLE\TRIMETHOPRIM
     Indication: GRANULOMATOSIS WITH POLYANGIITIS
     Dosage: MOST RECENT DOSE ON 11/MAY/2019
     Route: 048
     Dates: start: 2016

REACTIONS (1)
  - Agranulocytosis [Recovered/Resolved]

NARRATIVE: CASE EVENT DATE: 20190510
